FAERS Safety Report 10952302 (Version 1)
Quarter: 2015Q1

REPORT INFORMATION
  Report Type: Spontaneous
  Country: US (occurrence: None)
  Receive Date: 20150324
  Receipt Date: 20150324
  Transmission Date: 20150721
  Serious: Yes (Hospitalization)
  Sender: FDA-Public Use
  Company Number: None

PATIENT
  Age: 65 Year
  Sex: Male
  Weight: 120.6 kg

DRUGS (7)
  1. ZOSYN [Concomitant]
     Active Substance: PIPERACILLIN SODIUM\TAZOBACTAM SODIUM
  2. VANCOMYCIN [Concomitant]
     Active Substance: VANCOMYCIN
  3. CYTARABINE. [Suspect]
     Active Substance: CYTARABINE
     Dates: start: 20150303
  4. ACYCLOVIR. [Concomitant]
     Active Substance: ACYCLOVIR
  5. ITRACONAZOLE. [Concomitant]
     Active Substance: ITRACONAZOLE
  6. IDARUBICIN [Suspect]
     Active Substance: IDARUBICIN
  7. PRAVASTATIN SODIUM. [Suspect]
     Active Substance: PRAVASTATIN SODIUM
     Dates: start: 20150304

REACTIONS (6)
  - Respiratory distress [None]
  - Tachycardia [None]
  - Acute myocardial infarction [None]
  - Pulmonary oedema [None]
  - Septic shock [None]
  - Cardiogenic shock [None]

NARRATIVE: CASE EVENT DATE: 20150317
